FAERS Safety Report 5033347-9 (Version None)
Quarter: 2006Q2

REPORT INFORMATION
  Report Type: 
  Country: None (occurrence: None)
  Receive Date: 20060623
  Receipt Date: 20060615
  Transmission Date: 20061013
  Serious: Yes (Hospitalization)
  Sender: FDA-Public Use
  Company Number: JP-JNJFOC-20050704164

PATIENT
  Sex: Female
  Weight: 38 kg

DRUGS (2)
  1. LEVOFLOXACIN [Suspect]
     Indication: UPPER RESPIRATORY TRACT INFECTION
     Dates: start: 20050316, end: 20050316
  2. LOXONIN [Interacting]
     Indication: PELVIC PAIN
     Route: 048
     Dates: start: 20050316, end: 20050316

REACTIONS (3)
  - CARDIOMYOPATHY [None]
  - CONVULSION [None]
  - DRUG INTERACTION [None]
